FAERS Safety Report 9050684 (Version 2)
Quarter: 2013Q1

REPORT INFORMATION
  Report Type: Spontaneous
  Country: US (occurrence: US)
  Receive Date: 20130205
  Receipt Date: 20130213
  Transmission Date: 20140127
  Serious: Yes (Hospitalization)
  Sender: FDA-Public Use
  Company Number: US-ELI_LILLY_AND_COMPANY-US201203009319

PATIENT
  Sex: Male

DRUGS (5)
  1. HUMATROPE [Suspect]
     Indication: HYPOTHALAMO-PITUITARY DISORDER
     Dosage: 0.2 MG, UNK
  2. TESTOSTERONE [Concomitant]
     Dosage: UNK, WEEKLY (1/W)
  3. DEPO-TESTOSTERONE [Concomitant]
     Dosage: UNK
  4. CALCIUM [Concomitant]
     Dosage: UNK
     Route: 048
  5. VITAMIN D [Concomitant]
     Dosage: UNK
     Route: 048

REACTIONS (3)
  - Post procedural infection [Unknown]
  - Incorrect dose administered [Unknown]
  - Osteoporosis [Unknown]
